FAERS Safety Report 7211244-8 (Version None)
Quarter: 2011Q1

REPORT INFORMATION
  Report Type: 
  Country: None (occurrence: None)
  Receive Date: 20110105
  Receipt Date: 20110103
  Transmission Date: 20110831
  Serious: Yes (Hospitalization)
  Sender: FDA-Public Use
  Company Number: US-JNJFOC-20110100614

PATIENT
  Sex: Female
  Weight: 63.5 kg

DRUGS (5)
  1. DURAGESIC-50 [Suspect]
     Indication: BACK PAIN
     Route: 062
  2. FENTANYL-100 [Suspect]
     Indication: BACK PAIN
     Route: 062
  3. LYRICA [Concomitant]
     Indication: NEURALGIA
     Route: 048
  4. NORVASC [Concomitant]
     Indication: HYPERTENSION
     Route: 048
  5. FENTANYL-100 [Suspect]
     Indication: BACK PAIN
     Route: 062

REACTIONS (8)
  - APPLICATION SITE BLEEDING [None]
  - SURGERY [None]
  - KNEE ARTHROPLASTY [None]
  - APPLICATION SITE REACTION [None]
  - WRONG TECHNIQUE IN DRUG USAGE PROCESS [None]
  - PRODUCT ADHESION ISSUE [None]
  - DRUG ADMINISTRATION ERROR [None]
  - HOSPITALISATION [None]
